FAERS Safety Report 17288541 (Version 5)
Quarter: 2020Q1

REPORT INFORMATION
  Report Type: Spontaneous
  Country: TR (occurrence: TR)
  Receive Date: 20200120
  Receipt Date: 20200213
  Transmission Date: 20200409
  Serious: Yes (Life-Threatening, Other)
  Sender: FDA-Public Use
  Company Number: TR-PFIZER INC-2020021846

PATIENT
  Age: 55 Year
  Sex: Female

DRUGS (2)
  1. METHOTREXATE. [Suspect]
     Active Substance: METHOTREXATE
     Indication: RHEUMATOID ARTHRITIS
     Dosage: 10 MG, WEEKLY
     Route: 048
     Dates: end: 202001
  2. XELJANZ [Suspect]
     Active Substance: TOFACITINIB CITRATE
     Indication: RHEUMATOID ARTHRITIS
     Dosage: 5 MG, 2X/DAY
     Route: 048
     Dates: start: 2019, end: 202001

REACTIONS (2)
  - Neutropenia [Not Recovered/Not Resolved]
  - Acute myeloid leukaemia [Not Recovered/Not Resolved]

NARRATIVE: CASE EVENT DATE: 202001
